FAERS Safety Report 8173812-9 (Version None)
Quarter: 2012Q1

REPORT INFORMATION
  Report Type: 
  Country: None (occurrence: None)
  Receive Date: 20120224
  Receipt Date: 20120209
  Transmission Date: 20120608
  Serious: Yes (Death, Hospitalization, Other)
  Sender: FDA-Public Use
  Company Number: CIP11003241

PATIENT
  Age: 80 Year
  Sex: Female

DRUGS (6)
  1. ACETAMINOPHEN [Concomitant]
  2. MUCOSERUM (AMBROXOL, HYDROCHLORIDE) [Concomitant]
  3. VITAMIN D AND ANALOGUES (ELDECALCITOL) [Concomitant]
  4. CLARITHROMYCIN [Concomitant]
  5. RISEDRONATE SODIUM [Suspect]
     Indication: OSTEOPOROSIS
     Dosage: 17.5 MG ONCE WEEKLY, ORAL
     Route: 048
     Dates: start: 20110701, end: 20111123
  6. ADRENAL CORTICAL EXTRACT (ADRENAL CORTICAL EXTRACT) [Concomitant]

REACTIONS (15)
  - HEPATIC CYST [None]
  - CSF LACTATE DEHYDROGENASE INCREASED [None]
  - BACK PAIN [None]
  - PULMONARY EMBOLISM [None]
  - LYMPHOCYTE STIMULATION TEST POSITIVE [None]
  - BRONCHIECTASIS [None]
  - PULMONARY FIBROSIS [None]
  - INTERSTITIAL LUNG DISEASE [None]
  - PNEUMONIA PRIMARY ATYPICAL [None]
  - LYMPHADENOPATHY [None]
  - CLUBBING [None]
  - HAEMOGLOBIN DECREASED [None]
  - HAEMATOCRIT DECREASED [None]
  - MEAN CELL VOLUME DECREASED [None]
  - RED BLOOD CELL COUNT DECREASED [None]
